FAERS Safety Report 5270916-5 (Version None)
Quarter: 2007Q1

REPORT INFORMATION
  Report Type: 
  Country: None (occurrence: None)
  Receive Date: 20061214
  Receipt Date: 20061002
  Transmission Date: 20070707
  Serious: Yes (Other)
  Sender: FDA-Public Use
  Company Number: 2006123214

PATIENT
  Sex: Male

DRUGS (1)
  1. BEXTRA [Suspect]
     Dosage: ORAL
     Route: 048
     Dates: start: 20021228

REACTIONS (1)
  - ACUTE MYOCARDIAL INFARCTION [None]
